FAERS Safety Report 18243509 (Version 9)
Quarter: 2023Q4

REPORT INFORMATION
  Report Type: Spontaneous
  Country: US (occurrence: US)
  Receive Date: 20200908
  Receipt Date: 20231108
  Transmission Date: 20240109
  Serious: Yes (Hospitalization, Other)
  Sender: FDA-Public Use
  Company Number: US-PFIZER INC-2020346101

PATIENT
  Age: 64 Year
  Sex: Female

DRUGS (3)
  1. XELJANZ XR [Suspect]
     Active Substance: TOFACITINIB CITRATE
     Indication: Rheumatoid arthritis
     Dosage: 11 MG, DAILY
     Route: 048
     Dates: start: 201901, end: 202206
  2. XELJANZ XR [Suspect]
     Active Substance: TOFACITINIB CITRATE
     Dosage: 11 MG, DAILY
     Dates: start: 202210
  3. XELJANZ XR [Suspect]
     Active Substance: TOFACITINIB CITRATE
     Dosage: 11 MG, ALTERNATE DAY (HAS BEEN TAKING A DOSE EVERY OTHER DAY OR EVERY 2 DAYS TO CONSERVE)
     Route: 048
     Dates: start: 2019

REACTIONS (22)
  - Gait disturbance [Not Recovered/Not Resolved]
  - Knee arthroplasty [Unknown]
  - Paralysis [Unknown]
  - Intentional product misuse [Unknown]
  - Feeling abnormal [Unknown]
  - Loss of personal independence in daily activities [Unknown]
  - Limb mass [Recovering/Resolving]
  - Peripheral swelling [Unknown]
  - Pain in extremity [Unknown]
  - Foot deformity [Unknown]
  - Inflammation [Unknown]
  - Arthritis [Unknown]
  - Pain in extremity [Recovered/Resolved]
  - Skin fissures [Recovered/Resolved]
  - Muscular weakness [Recovered/Resolved]
  - Musculoskeletal stiffness [Not Recovered/Not Resolved]
  - Weight bearing difficulty [Unknown]
  - Dysstasia [Unknown]
  - Malaise [Unknown]
  - Swelling [Unknown]
  - Discouragement [Unknown]
  - Grip strength decreased [Unknown]

NARRATIVE: CASE EVENT DATE: 20201001
